FAERS Safety Report 5427258-4 (Version None)
Quarter: 2007Q3

REPORT INFORMATION
  Report Type: 
  Country: None (occurrence: None)
  Receive Date: 20070828
  Receipt Date: 20070822
  Transmission Date: 20080115
  Serious: Yes (Death)
  Sender: FDA-Public Use
  Company Number: TR-ABBOTT-07P-161-0378741-00

PATIENT
  Age: 72 Year
  Sex: Male
  Weight: 65 kg

DRUGS (3)
  1. TARKA FORT [Suspect]
     Indication: HYPERTENSION
     Route: 048
     Dates: start: 20070821, end: 20070822
  2. DILTIZEM SR [Concomitant]
     Indication: ATRIAL FIBRILLATION
     Route: 048
     Dates: start: 20070811, end: 20070822
  3. FUROSEMIDE [Concomitant]
     Indication: OEDEMA
     Route: 048

REACTIONS (1)
  - HYPOTENSION [None]
